FAERS Safety Report 6220638-9 (Version None)
Quarter: 2009Q2

REPORT INFORMATION
  Report Type: 
  Country: None (occurrence: None)
  Receive Date: 20090610
  Receipt Date: 20090604
  Transmission Date: 20091009
  Serious: Yes (Death, Hospitalization)
  Sender: FDA-Public Use
  Company Number: SE-ROCHE-636242

PATIENT
  Age: 40 Year
  Sex: Male

DRUGS (12)
  1. IKTORIVIL [Suspect]
     Indication: DRUG USE FOR UNKNOWN INDICATION
     Route: 065
  2. ABILIFY [Suspect]
     Dosage: DOSE: 5MGD
     Route: 048
     Dates: start: 20061127
  3. ABILIFY [Suspect]
     Route: 048
  4. STESOLID [Suspect]
     Indication: DRUG USE FOR UNKNOWN INDICATION
     Route: 065
  5. CISORDINOL-ACUTARD [Suspect]
     Indication: DRUG USE FOR UNKNOWN INDICATION
     Route: 065
  6. HALDOL [Suspect]
     Indication: DRUG USE FOR UNKNOWN INDICATION
     Dosage: HALDOL IN 5 MG/ML
     Route: 030
  7. PROPAVAN [Suspect]
     Indication: DRUG USE FOR UNKNOWN INDICATION
     Route: 065
  8. NOZINAN [Suspect]
     Indication: DRUG USE FOR UNKNOWN INDICATION
     Route: 065
  9. IMOVANE [Suspect]
     Indication: DRUG USE FOR UNKNOWN INDICATION
     Route: 065
  10. XANOR [Suspect]
     Indication: DRUG USE FOR UNKNOWN INDICATION
     Route: 065
  11. ZYPREXA [Suspect]
     Indication: DRUG USE FOR UNKNOWN INDICATION
     Route: 065
  12. PAROXETINE HCL [Suspect]
     Indication: DRUG USE FOR UNKNOWN INDICATION
     Route: 065

REACTIONS (3)
  - DEATH [None]
  - DELUSIONAL DISORDER, PERSECUTORY TYPE [None]
  - SEXUAL DYSFUNCTION [None]
